FAERS Safety Report 6171967-9 (Version None)
Quarter: 2009Q2

REPORT INFORMATION
  Report Type: 
  Country: None (occurrence: None)
  Receive Date: 20090429
  Receipt Date: 20090421
  Transmission Date: 20091009
  Serious: Yes (Other)
  Sender: FDA-Public Use
  Company Number: PHHY2009US15120

PATIENT
  Sex: Male

DRUGS (1)
  1. TEKTURNA [Suspect]

REACTIONS (1)
  - BLOOD PRESSURE INCREASED [None]
